FAERS Safety Report 8464376-0 (Version None)
Quarter: 2012Q2

REPORT INFORMATION
  Report Type: 
  Country: None (occurrence: None)
  Receive Date: 20120626
  Receipt Date: 20120614
  Transmission Date: 20120825
  Serious: Yes (Other)
  Sender: FDA-Public Use
  Company Number: DE-AMGEN-DEUSP2012037809

PATIENT
  Age: 55 Year
  Sex: Female

DRUGS (2)
  1. ATORVASTATIN CALCIUM [Concomitant]
     Dosage: UNK
  2. ENBREL [Suspect]
     Indication: PSORIASIS
     Dosage: 50 MG, WEEKLY
     Dates: start: 20111128, end: 20120531

REACTIONS (5)
  - LYMPHADENOPATHY [None]
  - PYREXIA [None]
  - FATIGUE [None]
  - INFECTION [None]
  - INFECTIOUS MONONUCLEOSIS [None]
